FAERS Safety Report 18639261 (Version 1)
Quarter: 2020Q4

REPORT INFORMATION
  Report Type: Spontaneous
  Country: RS (occurrence: RS)
  Receive Date: 20201219
  Receipt Date: 20201219
  Transmission Date: 20210114
  Serious: Yes (Hospitalization)
  Sender: FDA-Public Use
  Company Number: RS-STRIDES ARCOLAB LIMITED-2020SP015734

PATIENT
  Age: 29 Year
  Sex: Female

DRUGS (12)
  1. DOXICYCLIN [Concomitant]
     Active Substance: DOXYCYCLINE
     Indication: ENDOCARDITIS
     Dosage: UNK
     Route: 065
  2. VANCOMYCIN [Suspect]
     Active Substance: VANCOMYCIN
     Indication: BACTERIAL INFECTION
  3. LEVOFLOXACIN. [Suspect]
     Active Substance: LEVOFLOXACIN
     Indication: BACTERIAL INFECTION
  4. METRONIDAZOLE. [Suspect]
     Active Substance: METRONIDAZOLE
     Indication: BACTERIAL INFECTION
  5. CILASTATIN [Concomitant]
     Active Substance: CILASTATIN
     Indication: ENDOCARDITIS
     Dosage: UNK
     Route: 065
  6. LEVOFLOXACIN. [Suspect]
     Active Substance: LEVOFLOXACIN
     Indication: ENDOCARDITIS
     Dosage: UNK
     Route: 065
  7. FLUCONAZOLE. [Concomitant]
     Active Substance: FLUCONAZOLE
     Indication: ENDOCARDITIS
     Dosage: UNK
     Route: 065
  8. MEROPENEM. [Suspect]
     Active Substance: MEROPENEM
     Indication: ENDOCARDITIS
     Dosage: UNK
     Route: 065
  9. VANCOMYCIN [Suspect]
     Active Substance: VANCOMYCIN
     Indication: ENDOCARDITIS
     Dosage: UNK
     Route: 065
  10. METRONIDAZOLE. [Suspect]
     Active Substance: METRONIDAZOLE
     Indication: ENDOCARDITIS
     Dosage: UNK
     Route: 065
  11. EUBIOTIC [Concomitant]
     Indication: ENDOCARDITIS
     Dosage: UNK
     Route: 065
  12. MEROPENEM. [Suspect]
     Active Substance: MEROPENEM
     Indication: BACTERIAL INFECTION

REACTIONS (3)
  - Acute kidney injury [Recovered/Resolved]
  - Off label use [Unknown]
  - Renal failure [Recovered/Resolved]
